FAERS Safety Report 16686351 (Version 2)
Quarter: 2019Q3

REPORT INFORMATION
  Report Type: Report from Study
  Country: US (occurrence: US)
  Receive Date: 20190809
  Receipt Date: 20190823
  Transmission Date: 20191004
  Serious: Yes (Death, Other)
  Sender: FDA-Public Use
  Company Number: US-GILEAD-2019-0422706

PATIENT
  Age: 13 Year
  Sex: Female
  Weight: 46.5 kg

DRUGS (8)
  1. IRON [Concomitant]
     Active Substance: IRON
  2. ORENITRAM [Concomitant]
     Active Substance: TREPROSTINIL
  3. AMBRISENTAN [Suspect]
     Active Substance: AMBRISENTAN
     Indication: PULMONARY HYPERTENSION
     Dosage: 5 MG, QD
     Route: 048
     Dates: start: 2017
  4. LASIX [Concomitant]
     Active Substance: FUROSEMIDE
  5. ADCIRCA [Concomitant]
     Active Substance: TADALAFIL
  6. PENICILLIN [PENICILLIN NOS] [Concomitant]
     Active Substance: PENICILLIN
  7. AMBRISENTAN [Suspect]
     Active Substance: AMBRISENTAN
     Indication: HEART DISEASE CONGENITAL
  8. FLOVENT [Concomitant]
     Active Substance: FLUTICASONE PROPIONATE

REACTIONS (4)
  - Ventricular extrasystoles [Unknown]
  - Sudden death [Fatal]
  - Pulmonary arterial hypertension [Fatal]
  - Agonal rhythm [Unknown]

NARRATIVE: CASE EVENT DATE: 20190805
